FAERS Safety Report 17065806 (Version 1)
Quarter: 2019Q4

REPORT INFORMATION
  Report Type: Report from Study
  Country: IT (occurrence: IT)
  Receive Date: 20191122
  Receipt Date: 20191122
  Transmission Date: 20200122
  Serious: Yes (Hospitalization)
  Sender: FDA-Public Use
  Company Number: IT-MYLANLABS-2019M1112185

PATIENT
  Age: 60 Year
  Sex: Female
  Weight: 50 kg

DRUGS (7)
  1. PACLITAXEL. [Suspect]
     Active Substance: PACLITAXEL
     Indication: OVARIAN NEOPLASM
     Dosage: 250 MILLIGRAM, CYCLE
     Route: 042
     Dates: start: 20190617, end: 20190617
  2. CARBOPLATIN. [Concomitant]
     Active Substance: CARBOPLATIN
     Indication: OVARIAN CANCER
     Dosage: 410 MILLIGRAM, CYCLE
     Route: 042
     Dates: start: 20190617, end: 20190617
  3. RANITIDINE. [Concomitant]
     Active Substance: RANITIDINE
     Dosage: 50 MILLIGRAM, CYCLE
     Route: 042
     Dates: start: 20190617, end: 20190617
  4. CHLORPHENAMINE MALEATE [Concomitant]
     Active Substance: CHLORPHENIRAMINE MALEATE
     Dosage: 10 MILLIGRAM, CYCLE
     Route: 042
     Dates: start: 20190617, end: 20190617
  5. DEXAMETHASONE. [Concomitant]
     Active Substance: DEXAMETHASONE
     Dosage: 20 MILLIGRAM, CYCLE
     Route: 042
     Dates: start: 20190617, end: 20190617
  6. GRANISETRON HYDROCHLORIDE. [Concomitant]
     Active Substance: GRANISETRON HYDROCHLORIDE
     Dosage: 3 MILLIGRAM, CYCLE
     Route: 042
     Dates: start: 20190617, end: 20190617
  7. HYDROCORTISONE. [Concomitant]
     Active Substance: HYDROCORTISONE
     Dosage: 100 MILLIGRAM, CYCLE
     Route: 042
     Dates: start: 20190617, end: 20190617

REACTIONS (3)
  - Paraesthesia oral [Recovered/Resolved]
  - Tachycardia [Recovered/Resolved]
  - Dyspnoea [Recovered/Resolved]

NARRATIVE: CASE EVENT DATE: 20190617
